FAERS Safety Report 6206291-9 (Version None)
Quarter: 2009Q2

REPORT INFORMATION
  Report Type: 
  Country: None (occurrence: None)
  Receive Date: 20090528
  Receipt Date: 20090521
  Transmission Date: 20091009
  Serious: Yes (Hospitalization)
  Sender: FDA-Public Use
  Company Number: US-ROCHE-634305

PATIENT
  Sex: Female
  Weight: 64.9 kg

DRUGS (1)
  1. CAPECITABINE [Suspect]
     Indication: COLORECTAL CANCER
     Dosage: DOSAGE REPORTED AS ^3 IN THE MORNING (AM) AND 3 IN EVENING (PM)^
     Route: 048
     Dates: start: 20090227

REACTIONS (1)
  - HOSPITALISATION [None]
